FAERS Safety Report 20656205 (Version 1)
Quarter: 2022Q1

REPORT INFORMATION
  Report Type: Spontaneous
  Country: US (occurrence: US)
  Receive Date: 20220331
  Receipt Date: 20220331
  Transmission Date: 20220424
  Serious: No
  Sender: FDA-Public Use
  Company Number: US-Encube-000005

PATIENT
  Age: 75 Year
  Sex: Female

DRUGS (1)
  1. DICLOFENAC SODIUM [Suspect]
     Active Substance: DICLOFENAC SODIUM
     Indication: Back pain
     Dosage: THREE TIMES A DAY
     Route: 061
     Dates: start: 20220223, end: 20220318

REACTIONS (2)
  - Muscle twitching [Unknown]
  - Feeling cold [Unknown]

NARRATIVE: CASE EVENT DATE: 20220301
